FAERS Safety Report 8219471-8 (Version None)
Quarter: 2012Q1

REPORT INFORMATION
  Report Type: 
  Country: None (occurrence: None)
  Receive Date: 20120319
  Receipt Date: 20120314
  Transmission Date: 20120608
  Serious: No
  Sender: FDA-Public Use
  Company Number: US-PFIZER INC-2012067666

PATIENT
  Sex: Female

DRUGS (6)
  1. LIPITOR [Concomitant]
     Dosage: UNK
  2. LYRICA [Suspect]
     Indication: BACK PAIN
  3. LYRICA [Suspect]
     Indication: INTERVERTEBRAL DISC DEGENERATION
     Dosage: UNK
     Dates: start: 20110101
  4. NORVASC [Concomitant]
     Dosage: UNK
  5. LYRICA [Suspect]
     Indication: NERVE INJURY
  6. LYRICA [Suspect]
     Indication: DIABETIC NEUROPATHY
     Dosage: UNK
     Dates: end: 20111001

REACTIONS (2)
  - MEMORY IMPAIRMENT [None]
  - PAIN [None]
